FAERS Safety Report 14142567 (Version 1)
Quarter: 2017Q4

REPORT INFORMATION
  Report Type: Spontaneous
  Country: US (occurrence: US)
  Receive Date: 20171030
  Receipt Date: 20171030
  Transmission Date: 20180321
  Serious: Yes (Hospitalization, Other)
  Sender: FDA-Public Use
  Company Number: PHEH2017US034616

PATIENT
  Age: 18 Year
  Sex: Female
  Weight: 36 kg

DRUGS (11)
  1. HUMIRA [Suspect]
     Active Substance: ADALIMUMAB
     Indication: JUVENILE IDIOPATHIC ARTHRITIS
     Dosage: UNK
     Route: 065
  2. FLEXERIL [Suspect]
     Active Substance: CYCLOBENZAPRINE HYDROCHLORIDE
     Indication: SCOLIOSIS
     Dosage: UNK
     Route: 065
     Dates: start: 20090306, end: 20090916
  3. FOLIC ACID. [Concomitant]
     Active Substance: FOLIC ACID
     Indication: VITAMIN SUPPLEMENTATION
     Dosage: 2 MG, QD
     Route: 065
     Dates: start: 20090916, end: 20100519
  4. DELTASONE [Suspect]
     Active Substance: PREDNISONE
     Indication: JUVENILE IDIOPATHIC ARTHRITIS
     Dosage: UNK
     Route: 065
     Dates: start: 20091216, end: 20100217
  5. MOBIC [Suspect]
     Active Substance: MELOXICAM
     Dosage: UNK
     Route: 065
     Dates: start: 20110706, end: 20130206
  6. CELECOXIB. [Concomitant]
     Active Substance: CELECOXIB
     Indication: PAIN
  7. METHOTREXATE SODIUM. [Suspect]
     Active Substance: METHOTREXATE SODIUM
     Indication: JUVENILE IDIOPATHIC ARTHRITIS
     Dosage: 20 MG, QW
     Route: 058
     Dates: start: 20090916, end: 20100321
  8. FLEXERIL [Suspect]
     Active Substance: CYCLOBENZAPRINE HYDROCHLORIDE
     Dosage: UNK
     Route: 065
     Dates: end: 20100911
  9. MOBIC [Suspect]
     Active Substance: MELOXICAM
     Indication: JUVENILE IDIOPATHIC ARTHRITIS
     Dosage: UNK
     Route: 065
     Dates: start: 20091216, end: 20110706
  10. CELECOXIB. [Concomitant]
     Active Substance: CELECOXIB
     Indication: INFLAMMATION
  11. CELECOXIB. [Concomitant]
     Active Substance: CELECOXIB
     Indication: JUVENILE IDIOPATHIC ARTHRITIS
     Dosage: 100 MG, BID
     Route: 065

REACTIONS (4)
  - Oesophageal candidiasis [Unknown]
  - Arthralgia [Recovered/Resolved]
  - Hypotension [Unknown]
  - Abdominal pain [Unknown]

NARRATIVE: CASE EVENT DATE: 20151209
